FAERS Safety Report 23989093 (Version 1)
Quarter: 2024Q2

REPORT INFORMATION
  Report Type: Spontaneous
  Country: BE (occurrence: BE)
  Receive Date: 20240619
  Receipt Date: 20240619
  Transmission Date: 20240716
  Serious: Yes (Other)
  Sender: FDA-Public Use
  Company Number: BE-ALKEM LABORATORIES LIMITED-BE-ALKEM-2024-11932

PATIENT
  Age: 59 Year
  Sex: Female

DRUGS (4)
  1. ITRACONAZOLE [Suspect]
     Active Substance: ITRACONAZOLE
     Indication: Aplastic anaemia
     Dosage: 200 MILLIGRAM, QD
     Route: 065
  2. ITRACONAZOLE [Suspect]
     Active Substance: ITRACONAZOLE
     Dosage: 200 MILLIGRAM, QD (RESTARTED DOSE)
     Route: 065
     Dates: end: 19970404
  3. CYCLOSPORINE [Concomitant]
     Active Substance: CYCLOSPORINE
     Indication: Aplastic anaemia
     Dosage: 175 MILLIGRAM
     Route: 065
  4. OFLOXACIN [Concomitant]
     Active Substance: OFLOXACIN
     Indication: Aplastic anaemia
     Dosage: UNK
     Route: 065

REACTIONS (2)
  - Vanishing bile duct syndrome [Unknown]
  - Hepatitis cholestatic [Unknown]
